FAERS Safety Report 4750316-4 (Version None)
Quarter: 2005Q3

REPORT INFORMATION
  Report Type: 
  Country: None (occurrence: None)
  Receive Date: 20050823
  Receipt Date: 20050817
  Transmission Date: 20060218
  Serious: Yes (Other)
  Sender: FDA-Public Use
  Company Number: ES-JNJFOC-20050803854

PATIENT
  Age: 84 Year
  Sex: Male

DRUGS (8)
  1. LEVOFLOXACIN [Suspect]
     Indication: PNEUMONIA
  2. LEVOFLOXACIN [Suspect]
     Indication: BRONCHITIS
  3. LEVOFLOXACIN [Suspect]
     Indication: INFECTION
  4. ACENOCUMAROL [Interacting]
     Indication: INFECTION
  5. DIGOXIN [Concomitant]
  6. FUROSEMIDE [Concomitant]
  7. ANTIHYPERTENSIVE DRUGS [Concomitant]
  8. INHALED BRONCHODILATORS [Concomitant]

REACTIONS (4)
  - DIARRHOEA [None]
  - DRUG INTERACTION [None]
  - HAEMORRHAGE [None]
  - INTERNATIONAL NORMALISED RATIO INCREASED [None]
